FAERS Safety Report 7574252-3 (Version None)
Quarter: 2011Q2

REPORT INFORMATION
  Report Type: 
  Country: None (occurrence: None)
  Receive Date: 20110627
  Receipt Date: 20110617
  Transmission Date: 20111010
  Serious: Yes (Hospitalization, Other)
  Sender: FDA-Public Use
  Company Number: US-JNJFOC-20110609421

PATIENT
  Age: 50 Year
  Sex: Female

DRUGS (1)
  1. ELMIRON [Suspect]
     Indication: CYSTITIS INTERSTITIAL
     Route: 048

REACTIONS (4)
  - SURGERY [None]
  - ABNORMAL LOSS OF WEIGHT [None]
  - CONDITION AGGRAVATED [None]
  - ABDOMINAL OPERATION [None]
